FAERS Safety Report 11441017 (Version 1)
Quarter: 2015Q3

REPORT INFORMATION
  Report Type: Spontaneous
  Country: US (occurrence: US)
  Receive Date: 20150821
  Receipt Date: 20150821
  Transmission Date: 20151125
  Serious: No
  Sender: FDA-Public Use
  Company Number: US-ELI_LILLY_AND_COMPANY-US200801002859

PATIENT
  Age: 51 Year
  Sex: Male

DRUGS (4)
  1. OXYCODONE [Concomitant]
     Active Substance: OXYCODONE
     Indication: PAIN
  2. CYMBALTA [Suspect]
     Active Substance: DULOXETINE HYDROCHLORIDE
     Indication: PAIN
     Dosage: 60 MG, 2/D
     Dates: start: 2004
  3. LYRICA [Concomitant]
     Active Substance: PREGABALIN
  4. ALPRAZOLAM. [Concomitant]
     Active Substance: ALPRAZOLAM

REACTIONS (12)
  - Impaired driving ability [Unknown]
  - Carpal tunnel decompression [Unknown]
  - Drug ineffective [Unknown]
  - Disorientation [Unknown]
  - Depression [Unknown]
  - Hernia repair [Unknown]
  - Hearing impaired [Unknown]
  - Breath alcohol test positive [Unknown]
  - Pain [Unknown]
  - Tinnitus [Unknown]
  - Memory impairment [Unknown]
  - Bone operation [Unknown]

NARRATIVE: CASE EVENT DATE: 200710
